FAERS Safety Report 24930240 (Version 1)
Quarter: 2025Q1

REPORT INFORMATION
  Report Type: Spontaneous
  Country: US (occurrence: US)
  Receive Date: 20250205
  Receipt Date: 20250205
  Transmission Date: 20250409
  Serious: No
  Sender: PFIZER
  Company Number: US-PFIZER INC-PV202500012746

PATIENT
  Age: 60 Year

DRUGS (2)
  1. TIKOSYN [Suspect]
     Active Substance: DOFETILIDE
  2. LYRICA [Concomitant]
     Active Substance: PREGABALIN
     Indication: Neuralgia

REACTIONS (1)
  - Nasopharyngitis [Unknown]
